FAERS Safety Report 8251389-7 (Version None)
Quarter: 2012Q2

REPORT INFORMATION
  Report Type: 
  Country: None (occurrence: None)
  Receive Date: 20120402
  Receipt Date: 20120326
  Transmission Date: 20120825
  Serious: Yes (Hospitalization, Other)
  Sender: FDA-Public Use
  Company Number: DK-PFIZER INC-2011126859

PATIENT
  Age: 34 Year
  Sex: Female
  Weight: 72 kg

DRUGS (2)
  1. EFFEXOR [Suspect]
     Dosage: 300 MG DAILY
     Dates: start: 20090101, end: 20100701
  2. EFFEXOR [Suspect]
     Indication: DEPRESSION
     Dosage: 375 MG, 1X/DAY
     Dates: start: 20080401, end: 20090101

REACTIONS (3)
  - VAGINAL HAEMORRHAGE [None]
  - PAIN [None]
  - ABORTION MISSED [None]
